FAERS Safety Report 21008854 (Version 1)
Quarter: 2022Q2

REPORT INFORMATION
  Report Type: Spontaneous
  Country: US (occurrence: None)
  Receive Date: 20220627
  Receipt Date: 20220627
  Transmission Date: 20220720
  Serious: No
  Sender: FDA-Public Use
  Company Number: 2022A209689

PATIENT
  Sex: Male

DRUGS (3)
  1. DURVALUMAB [Suspect]
     Active Substance: DURVALUMAB
     Indication: Biliary neoplasm
     Route: 042
  2. GEMCITABINE [Suspect]
     Active Substance: GEMCITABINE
     Indication: Biliary neoplasm
     Route: 065
  3. CISPLATIN [Suspect]
     Active Substance: CISPLATIN
     Indication: Biliary neoplasm
     Route: 065

REACTIONS (3)
  - Fatigue [Unknown]
  - Hyperhidrosis [Unknown]
  - Swelling [Unknown]
